FAERS Safety Report 19480039 (Version 1)
Quarter: 2021Q2

REPORT INFORMATION
  Report Type: Spontaneous
  Country: US (occurrence: US)
  Receive Date: 20210630
  Receipt Date: 20210630
  Transmission Date: 20210717
  Serious: No
  Sender: FDA-Public Use
  Company Number: US-FOUNDATIONCONSUMERHC-2020-US-026182

PATIENT
  Age: 26 Year
  Sex: Female
  Weight: 73.03 kg

DRUGS (2)
  1. PLAN B ONE?STEP [Suspect]
     Active Substance: LEVONORGESTREL
     Indication: POST COITAL CONTRACEPTION
     Dosage: 1 TABLET X3 DOSES
     Route: 048
     Dates: start: 202011, end: 202011
  2. SMOKES CANNABIS [Concomitant]

REACTIONS (7)
  - Vaginal haemorrhage [Recovered/Resolved]
  - Intentional product misuse [Recovered/Resolved]
  - Product use in unapproved indication [Recovered/Resolved]
  - Headache [Recovered/Resolved]
  - Nipple pain [Recovered/Resolved]
  - Menstruation irregular [Unknown]
  - Nausea [Recovered/Resolved]

NARRATIVE: CASE EVENT DATE: 202011
